FAERS Safety Report 14673486 (Version 1)
Quarter: 2018Q1

REPORT INFORMATION
  Report Type: Spontaneous
  Country: US (occurrence: US)
  Receive Date: 20180323
  Receipt Date: 20180323
  Transmission Date: 20180509
  Serious: No
  Sender: FDA-Public Use
  Company Number: US-BIOGEN-2018BI00543668

PATIENT
  Age: 10 Month
  Sex: Male

DRUGS (3)
  1. SPINRAZA [Suspect]
     Active Substance: NUSINERSEN
     Indication: SPINAL MUSCULAR ATROPHY
     Dosage: LOADING DOSES: FIRST 3 LOADING DOSES EVERY 14 DAYS
     Route: 037
     Dates: start: 20170309
  2. SPINRAZA [Suspect]
     Active Substance: NUSINERSEN
     Dosage: MAINTENANCE DOSES: ONCE EVERY 4 MONTHS.
     Route: 037
  3. SPINRAZA [Suspect]
     Active Substance: NUSINERSEN
     Dosage: 4TH LOADING DOSE ONCE AFTER 30 DAYS.
     Route: 037

REACTIONS (1)
  - Allergic respiratory symptom [Not Recovered/Not Resolved]

NARRATIVE: CASE EVENT DATE: 20180305
